FAERS Safety Report 10095051 (Version 3)
Quarter: 2014Q3

REPORT INFORMATION
  Report Type: Spontaneous
  Country: US (occurrence: US)
  Receive Date: 20140422
  Receipt Date: 20140825
  Transmission Date: 20150326
  Serious: Yes (Hospitalization)
  Sender: FDA-Public Use
  Company Number: US-BAYER-2014-058761

PATIENT
  Age: 38 Year
  Sex: Female
  Weight: 72.56 kg

DRUGS (1)
  1. MIRENA [Suspect]
     Active Substance: LEVONORGESTREL
     Indication: CONTRACEPTION
     Dosage: 20 MCG/24HR, CONT
     Route: 015
     Dates: start: 20111010, end: 20111029

REACTIONS (9)
  - Emotional distress [None]
  - Abdominal discomfort [None]
  - Uterine perforation [None]
  - Abdominal pain [None]
  - Medical device pain [None]
  - Pain [None]
  - Neuralgia [None]
  - Abasia [None]
  - Injury [None]

NARRATIVE: CASE EVENT DATE: 201110
